FAERS Safety Report 5169141-8 (Version None)
Quarter: 2006Q4

REPORT INFORMATION
  Report Type: 
  Country: None (occurrence: None)
  Receive Date: 20061201
  Receipt Date: 20061124
  Transmission Date: 20070319
  Serious: Yes (Other)
  Sender: FDA-Public Use
  Company Number: OSCN-PR-0611L-0367

PATIENT
  Age: 70 Year
  Sex: Female

DRUGS (12)
  1. OMNISCAN [Suspect]
     Indication: DRUG USE FOR UNKNOWN INDICATION
     Dosage: SINGLE, DOSE, I.V.
     Route: 042
  2. EPOGEN [Concomitant]
  3. NIFEDIPINE HCL [Concomitant]
  4. METOPROLOL SUCCINATE [Concomitant]
  5. PREDNISONE TAB [Concomitant]
  6. NEPHRO-VITE [Concomitant]
  7. PRAVASTATIN [Concomitant]
  8. CALCIUM ACETATE [Concomitant]
  9. TRAZODONE HCL [Concomitant]
  10. LEVOTHYROXINE SODIUM [Concomitant]
  11. ALPRAZOLAM [Concomitant]
  12. HYDROXYZINE [Concomitant]

REACTIONS (6)
  - INSOMNIA [None]
  - NEPHROGENIC FIBROSING DERMOPATHY [None]
  - OEDEMA PERIPHERAL [None]
  - PAIN IN EXTREMITY [None]
  - PRURITUS [None]
  - THERAPY NON-RESPONDER [None]
